FAERS Safety Report 20553109 (Version 1)
Quarter: 2022Q1

REPORT INFORMATION
  Report Type: Spontaneous
  Country: GB (occurrence: GB)
  Receive Date: 20220304
  Receipt Date: 20220304
  Transmission Date: 20220423
  Serious: Yes (Other)
  Sender: FDA-Public Use
  Company Number: GB-NOVARTISPH-NVSC2022GB048465

PATIENT
  Age: 58 Year
  Sex: Female

DRUGS (4)
  1. LAPATINIB [Suspect]
     Active Substance: LAPATINIB
     Indication: Gallbladder cancer stage IV
     Dosage: 1250 MG, QD CONTINUOUSLY
     Route: 065
     Dates: start: 202011
  2. LAPATINIB [Suspect]
     Active Substance: LAPATINIB
     Indication: Metastases to liver
  3. TRASTUZUMAB [Concomitant]
     Active Substance: TRASTUZUMAB
     Indication: Gallbladder cancer stage IV
     Dosage: 8 MG/KG
     Route: 065
     Dates: start: 202011
  4. TRASTUZUMAB [Concomitant]
     Active Substance: TRASTUZUMAB
     Indication: Metastases to liver
     Dosage: 6 MG/KG Q21
     Route: 065

REACTIONS (2)
  - Diarrhoea [Unknown]
  - Product use in unapproved indication [Unknown]
